FAERS Safety Report 8102492-3 (Version None)
Quarter: 2012Q1

REPORT INFORMATION
  Report Type: 
  Country: None (occurrence: None)
  Receive Date: 20120126
  Receipt Date: 20120118
  Transmission Date: 20120608
  Serious: Yes (Other)
  Sender: FDA-Public Use
  Company Number: AUR-APL-2011-05828

PATIENT
  Age: 79 Year
  Sex: Male

DRUGS (7)
  1. LIPITOR [Suspect]
     Indication: BLOOD CHOLESTEROL
     Dates: end: 20110101
  2. METOPROLOL TARTRATE [Suspect]
     Indication: PRODUCT USED FOR UNKNOWN INDICATION
     Dosage: (1 D), ORAL
     Route: 048
  3. PLAVIX [Concomitant]
  4. MULTAQ [Concomitant]
     Indication: ATRIAL FIBRILLATION
     Dosage: 800 MG (400 MG, 2 IN 1 D), ORAL
     Route: 048
     Dates: start: 20101001
  5. ACETYLSALICYLIC ACID SRT [Concomitant]
  6. FLECAINIDE ACETATE [Concomitant]
  7. WARFARIN SODIUM [Concomitant]

REACTIONS (8)
  - ATRIAL FIBRILLATION [None]
  - FATIGUE [None]
  - DIZZINESS [None]
  - ABDOMINAL PAIN [None]
  - ARTHRALGIA [None]
  - MYALGIA [None]
  - ABDOMINAL TENDERNESS [None]
  - ASTHENIA [None]
